FAERS Safety Report 6283701-2 (Version None)
Quarter: 2009Q3

REPORT INFORMATION
  Report Type: 
  Country: None (occurrence: None)
  Receive Date: 20090724
  Receipt Date: 20090528
  Transmission Date: 20100115
  Serious: No
  Sender: FDA-Public Use
  Company Number: US-ALEXION-A200900426

PATIENT
  Sex: Female

DRUGS (6)
  1. SOLIRIS [Suspect]
     Indication: PAROXYSMAL NOCTURNAL HAEMOGLOBINURIA
     Dosage: UNK
     Route: 042
     Dates: start: 20041117, end: 20070607
  2. SOLIRIS [Suspect]
     Dosage: UNK
     Route: 042
     Dates: start: 20070817
  3. SOLIRIS [Suspect]
     Dosage: 900 MG, Q2W
     Route: 042
  4. FOLIC ACID [Concomitant]
     Dosage: UNK
     Route: 048
  5. VITAMINS                           /90003601/ [Concomitant]
     Indication: SUPPLEMENTATION THERAPY
     Dosage: UNK
     Route: 048
  6. NORVASC [Concomitant]
     Dosage: 2.5 MG, QD
     Route: 048

REACTIONS (2)
  - HAEMOGLOBIN DECREASED [None]
  - SINUSITIS [None]
